FAERS Safety Report 7121333-4 (Version None)
Quarter: 2010Q4

REPORT INFORMATION
  Report Type: 
  Country: None (occurrence: None)
  Receive Date: 20101124
  Receipt Date: 20101110
  Transmission Date: 20110411
  Serious: Yes (Other)
  Sender: FDA-Public Use
  Company Number: PHHY2010BR43200

PATIENT
  Sex: Female

DRUGS (1)
  1. DIOVAN TRIPLE [Suspect]

REACTIONS (4)
  - BLOOD PRESSURE FLUCTUATION [None]
  - DRUG DOSE OMISSION [None]
  - RENAL DISORDER [None]
  - TUMOUR THROMBOSIS [None]
